FAERS Safety Report 20703470 (Version 2)
Quarter: 2023Q2

REPORT INFORMATION
  Report Type: Spontaneous
  Country: US (occurrence: US)
  Receive Date: 20220413
  Receipt Date: 20230515
  Transmission Date: 20230721
  Serious: Yes (Other)
  Sender: FDA-Public Use
  Company Number: US-AMGEN-USASP2022061809

PATIENT
  Sex: Male

DRUGS (1)
  1. OTEZLA [Suspect]
     Active Substance: APREMILAST
     Indication: Psoriasis
     Dosage: 30 MILLIGRAM, BID
     Route: 048
     Dates: start: 20210209

REACTIONS (5)
  - Cataract operation [Unknown]
  - Therapy non-responder [Unknown]
  - Intentional product misuse [Unknown]
  - Pain [Unknown]
  - Product dose omission issue [Unknown]
